FAERS Safety Report 24118291 (Version 1)
Quarter: 2024Q3

REPORT INFORMATION
  Report Type: Spontaneous
  Country: IT (occurrence: IT)
  Receive Date: 20240722
  Receipt Date: 20240722
  Transmission Date: 20241017
  Serious: Yes (Life-Threatening, Hospitalization, Other)
  Sender: MERCK
  Company Number: None

PATIENT
  Age: 45 Year
  Sex: Female
  Weight: 50 kg

DRUGS (3)
  1. KEYTRUDA [Suspect]
     Active Substance: PEMBROLIZUMAB
     Indication: Lung carcinoma cell type unspecified stage IV
     Dosage: 200 MG ASSOCIATED WITH CARBOPLATIN-PEMETREXED EVERY 21 DAYS
     Route: 042
     Dates: start: 20240502, end: 20240523
  2. CARBOPLATIN [Concomitant]
     Active Substance: CARBOPLATIN
     Indication: Lung adenocarcinoma stage IV
     Dosage: AUC 5 EVERY 21 DAYS; PERFORM REDUCED DOSES ON BOTH THE 1ST AND 2ND CYCLE WITH A TOTAL DOSE OF 488 AN
     Route: 042
     Dates: start: 20240502, end: 20240523
  3. PEMETREXED DISODIUM [Concomitant]
     Active Substance: PEMETREXED DISODIUM
     Indication: Lung adenocarcinoma stage IV
     Dosage: 500 MG/M2 EVERY 21 DAYS
     Route: 042
     Dates: start: 20240502, end: 20240523

REACTIONS (2)
  - Thrombocytopenia [Recovered/Resolved]
  - Cardiac tamponade [Recovering/Resolving]

NARRATIVE: CASE EVENT DATE: 20240603
